FAERS Safety Report 5327244-9 (Version None)
Quarter: 2007Q2

REPORT INFORMATION
  Report Type: 
  Country: None (occurrence: None)
  Receive Date: 20070517
  Receipt Date: 20070510
  Transmission Date: 20071010
  Serious: Yes (Hospitalization)
  Sender: FDA-Public Use
  Company Number: FR-AVENTIS-200711662FR

PATIENT
  Age: 82 Year
  Sex: Female

DRUGS (5)
  1. LASILIX                            /00032601/ [Suspect]
     Route: 048
  2. LANTUS [Suspect]
     Route: 058
  3. XANAX [Suspect]
     Route: 048
     Dates: start: 20070221, end: 20070223
  4. ALLOPURINOL [Suspect]
     Route: 048
  5. PLAVIX [Suspect]
     Route: 048

REACTIONS (1)
  - CONFUSIONAL STATE [None]
